FAERS Safety Report 4990667-1 (Version None)
Quarter: 2006Q2

REPORT INFORMATION
  Report Type: 
  Country: None (occurrence: None)
  Receive Date: 20060427
  Receipt Date: 20060418
  Transmission Date: 20061013
  Serious: Yes (Other)
  Sender: FDA-Public Use
  Company Number: CIP06000859

PATIENT
  Age: 63 Year
  Sex: Female

DRUGS (4)
  1. ACTONEL [Suspect]
     Indication: OSTEOPOROSIS
     Dosage: 5 MG DAILY, ORAL
     Route: 048
     Dates: start: 20011201, end: 20060418
  2. LOPRESSOR [Concomitant]
  3. TOFRANIL [Concomitant]
  4. TRANXENE [Concomitant]

REACTIONS (5)
  - DEPRESSION [None]
  - GRAFT DYSFUNCTION [None]
  - JAW FRACTURE [None]
  - LOCALISED INFECTION [None]
  - SWELLING FACE [None]
